FAERS Safety Report 5181383-4 (Version None)
Quarter: 2006Q4

REPORT INFORMATION
  Report Type: 
  Country: None (occurrence: None)
  Receive Date: 20061220
  Receipt Date: 20060104
  Transmission Date: 20070319
  Serious: No
  Sender: FDA-Public Use
  Company Number: US-GLAXOSMITHKLINE-A0587702A

PATIENT
  Age: 43 Year
  Sex: Female

DRUGS (3)
  1. COMMIT [Suspect]
     Dates: start: 20051228
  2. KEPPRA [Concomitant]
  3. DILANTIN [Concomitant]

REACTIONS (2)
  - HEADACHE [None]
  - PARAESTHESIA ORAL [None]
